FAERS Safety Report 10599218 (Version 1)
Quarter: 2014Q4

REPORT INFORMATION
  Report Type: Spontaneous
  Country: ES (occurrence: ES)
  Receive Date: 20141121
  Receipt Date: 20141121
  Transmission Date: 20150529
  Serious: Yes (Life-Threatening)
  Sender: FDA-Public Use
  Company Number: ES-BAYER-2014-169628

PATIENT
  Age: 60 Year
  Sex: Male

DRUGS (3)
  1. CLOPIDOGREL [Concomitant]
     Active Substance: CLOPIDOGREL BISULFATE
  2. ACETYLSALICYLIC ACID({=100 MG) [Suspect]
     Active Substance: ASPIRIN
  3. FONDAPARINUX [Concomitant]
     Active Substance: FONDAPARINUX

REACTIONS (2)
  - Acute myocardial infarction [None]
  - Haemorrhage coronary artery [None]

NARRATIVE: CASE EVENT DATE: 2014
